FAERS Safety Report 5511664-3 (Version None)
Quarter: 2007Q4

REPORT INFORMATION
  Report Type: 
  Country: None (occurrence: None)
  Receive Date: 20071109
  Receipt Date: 20071030
  Transmission Date: 20080405
  Serious: Yes (Other)
  Sender: FDA-Public Use
  Company Number: US-PFIZER INC-2007067029

PATIENT
  Sex: Female

DRUGS (4)
  1. CELEBREX [Suspect]
  2. MONOPRIL [Concomitant]
  3. HYDROCHLOROTHIAZIDE [Concomitant]
  4. CRESTOR [Concomitant]

REACTIONS (2)
  - HYPERTENSION [None]
  - SPINAL COLUMN STENOSIS [None]
